FAERS Safety Report 8902593 (Version 1)
Quarter: 2012Q4

REPORT INFORMATION
  Report Type: 
  Country: US (occurrence: US)
  Receive Date: 20121112
  Receipt Date: 20121112
  Transmission Date: 20130627
  Serious: Yes (Other)
  Sender: FDA-Public Use
  Company Number: US-PFIZER INC-2012281549

PATIENT
  Age: 77 Year
  Sex: Female
  Weight: 104 kg

DRUGS (4)
  1. PRISTIQ [Suspect]
     Indication: NEUROTRANSMITTER LEVEL ALTERED
     Dosage: 50 mg, daily
  2. ATENOLOL [Concomitant]
     Indication: BLOOD PRESSURE INCREASED
     Dosage: half tablet in the morning and half in the evening
     Route: 048
  3. COUMADIN [Concomitant]
     Dosage: UNK
  4. ACETYLSALICYLIC ACID [Concomitant]
     Dosage: UNK

REACTIONS (3)
  - Cerebrovascular accident [Recovered/Resolved]
  - Aphasia [Not Recovered/Not Resolved]
  - Alexia [Not Recovered/Not Resolved]
